FAERS Safety Report 9070266 (Version 2)
Quarter: 2013Q1

REPORT INFORMATION
  Report Type: Spontaneous
  Country: US (occurrence: US)
  Receive Date: 20130215
  Receipt Date: 20130305
  Transmission Date: 20140127
  Serious: Yes (Hospitalization)
  Sender: FDA-Public Use
  Company Number: US-VERTEX PHARMACEUTICALS INC.-2013-002070

PATIENT
  Age: 48 Year
  Sex: Male
  Weight: 60 kg

DRUGS (7)
  1. INCIVEK [Suspect]
     Indication: HEPATITIS C
     Dosage: 750 MG, TID
     Route: 048
     Dates: start: 20130126, end: 20130207
  2. RIBAVIRIN [Suspect]
     Indication: HEPATITIS C
     Dosage: 600 MG IN AM, 400 MG IN PM
     Route: 048
     Dates: start: 20130126, end: 20130207
  3. PEGASYS [Suspect]
     Indication: HEPATITIS C
     Dosage: 180 ?G, QW
     Route: 058
     Dates: start: 20130126, end: 20130207
  4. ATRIPLA [Concomitant]
  5. SEROQUEL [Concomitant]
  6. LEXAPRO [Concomitant]
  7. DEPAKOTE [Concomitant]

REACTIONS (2)
  - Pharyngeal haemorrhage [Recovered/Resolved]
  - Epistaxis [Recovered/Resolved]
